FAERS Safety Report 15936088 (Version 2)
Quarter: 2025Q4

REPORT INFORMATION
  Report Type: Report from Study
  Country: EU (occurrence: EU)
  Receive Date: 20190208
  Receipt Date: 20251030
  Transmission Date: 20260118
  Serious: Yes (Other)
  Sender: AUROBINDO
  Company Number: EU-AUROBINDO-AUR-APL-2019-006392

PATIENT
  Age: 27 Year
  Sex: Male

DRUGS (3)
  1. VALPROIC ACID [Suspect]
     Active Substance: VALPROIC ACID
     Indication: Generalised tonic-clonic seizure
     Dosage: UNK
     Route: 065
  2. ETHOSUXIMIDE [Suspect]
     Active Substance: ETHOSUXIMIDE
     Indication: Generalised tonic-clonic seizure
     Dosage: UNK
     Route: 065
  3. CLOBAZAM [Suspect]
     Active Substance: CLOBAZAM
     Indication: Generalised tonic-clonic seizure
     Dosage: UNK
     Route: 065

REACTIONS (1)
  - Generalised tonic-clonic seizure [Unknown]
